FAERS Safety Report 19768651 (Version 1)
Quarter: 2021Q3

REPORT INFORMATION
  Report Type: Spontaneous
  Country: US (occurrence: US)
  Receive Date: 20210827
  Receipt Date: 20210827
  Transmission Date: 20211014
  Serious: Yes (Hospitalization)
  Sender: FDA-Public Use
  Company Number: None

PATIENT
  Age: 54 Year
  Sex: Female

DRUGS (10)
  1. XARELTO [Concomitant]
     Active Substance: RIVAROXABAN
  2. ENBREL [Suspect]
     Active Substance: ETANERCEPT
     Indication: RHEUMATOID ARTHRITIS
     Route: 058
     Dates: start: 20180718
  3. OXYCODONE [Concomitant]
     Active Substance: OXYCODONE
  4. PRAVASTATIN. [Concomitant]
     Active Substance: PRAVASTATIN
  5. PREDNISONE. [Concomitant]
     Active Substance: PREDNISONE
  6. STOOL SOFTNER [Concomitant]
  7. TRAZODONE [Concomitant]
     Active Substance: TRAZODONE HYDROCHLORIDE
  8. CLOTRIM/BETA LOT DIPROP [Concomitant]
  9. FLUTICASONE. [Concomitant]
     Active Substance: FLUTICASONE
  10. SULFASAIAZIN [Concomitant]

REACTIONS (1)
  - Therapy interrupted [None]

NARRATIVE: CASE EVENT DATE: 20210727
